FAERS Safety Report 25190251 (Version 6)
Quarter: 2025Q3

REPORT INFORMATION
  Report Type: Report from Study
  Country: US (occurrence: US)
  Receive Date: 20250411
  Receipt Date: 20250825
  Transmission Date: 20251021
  Serious: Yes (Hospitalization, Other)
  Sender: UCB
  Company Number: US-UCBSA-2025021235

PATIENT
  Sex: Female

DRUGS (7)
  1. BRIVARACETAM [Suspect]
     Active Substance: BRIVARACETAM
     Indication: Partial seizures
     Dosage: 25 MILLIGRAM, 2X/DAY (BID)
     Route: 048
     Dates: start: 2025
  2. BRIVARACETAM [Suspect]
     Active Substance: BRIVARACETAM
     Indication: Seizure
     Dosage: 100 MILLIGRAM, 2X/DAY (BID)
     Route: 048
     Dates: start: 2025
  3. BRIVARACETAM [Suspect]
     Active Substance: BRIVARACETAM
     Dosage: 50 MILLIGRAM, 2X/DAY (BID)
     Route: 048
     Dates: start: 2025
  4. LAMOTRIGINE [Concomitant]
     Active Substance: LAMOTRIGINE
     Indication: Seizure
  5. LAMOTRIGINE [Concomitant]
     Active Substance: LAMOTRIGINE
  6. LAMOTRIGINE [Concomitant]
     Active Substance: LAMOTRIGINE
     Dosage: 10 MILLIGRAM, 2X/DAY (BID)
     Route: 048
  7. TOPIRAMATE [Concomitant]
     Active Substance: TOPIRAMATE
     Indication: Product used for unknown indication

REACTIONS (18)
  - Seizure [Not Recovered/Not Resolved]
  - Spinal fracture [Recovering/Resolving]
  - Fall [Not Recovered/Not Resolved]
  - Atonic seizures [Not Recovered/Not Resolved]
  - Head injury [Unknown]
  - Loss of consciousness [Unknown]
  - Memory impairment [Not Recovered/Not Resolved]
  - Dizziness [Not Recovered/Not Resolved]
  - Hypersomnia [Not Recovered/Not Resolved]
  - Somnolence [Not Recovered/Not Resolved]
  - Fear [Unknown]
  - Feeling of despair [Not Recovered/Not Resolved]
  - Feeling drunk [Not Recovered/Not Resolved]
  - Confusional state [Not Recovered/Not Resolved]
  - Anxiety [Not Recovered/Not Resolved]
  - Therapeutic product effect incomplete [Unknown]
  - Drug ineffective [Unknown]
  - Drug intolerance [Not Recovered/Not Resolved]

NARRATIVE: CASE EVENT DATE: 20250101
